FAERS Safety Report 5755439-9 (Version None)
Quarter: 2008Q2

REPORT INFORMATION
  Report Type: 
  Country: None (occurrence: None)
  Receive Date: 20080529
  Receipt Date: 20080529
  Transmission Date: 20081010
  Serious: No
  Sender: FDA-Public Use
  Company Number: None

PATIENT
  Age: 62 Year
  Sex: Male
  Weight: 69.4003 kg

DRUGS (1)
  1. CHANTIX [Suspect]
     Dates: start: 20080228, end: 20080428

REACTIONS (5)
  - ACTIVITIES OF DAILY LIVING IMPAIRED [None]
  - DEPRESSION [None]
  - ILL-DEFINED DISORDER [None]
  - IMPATIENCE [None]
  - SUICIDAL IDEATION [None]
